FAERS Safety Report 11382046 (Version 1)
Quarter: 2015Q3

REPORT INFORMATION
  Report Type: Report from Study
  Country: US (occurrence: US)
  Receive Date: 20150814
  Receipt Date: 20150814
  Transmission Date: 20151125
  Serious: Yes (Other)
  Sender: FDA-Public Use
  Company Number: PHHY2015US043222

PATIENT
  Age: 58 Year
  Sex: Female

DRUGS (2)
  1. GILENYA [Suspect]
     Active Substance: FINGOLIMOD HYDROCHLORIDE
     Indication: MULTIPLE SCLEROSIS
     Dosage: OT, QD
     Route: 065
  2. NEXIUM [Concomitant]
     Active Substance: ESOMEPRAZOLE MAGNESIUM
     Indication: HIATUS HERNIA
     Route: 065
     Dates: start: 20150101, end: 20150420

REACTIONS (12)
  - Pneumonia [Recovered/Resolved]
  - Bronchitis [Recovered/Resolved]
  - White blood cell count decreased [Unknown]
  - Conjunctivitis [Recovered/Resolved]
  - Visual acuity reduced [Unknown]
  - Sinusitis [Recovered/Resolved]
  - High density lipoprotein decreased [Unknown]
  - Paraesthesia [Unknown]
  - Pain in extremity [Unknown]
  - Lymphocyte percentage decreased [Unknown]
  - Cough [Unknown]
  - Epistaxis [Unknown]

NARRATIVE: CASE EVENT DATE: 20150101
